FAERS Safety Report 8392141-1 (Version None)
Quarter: 2012Q2

REPORT INFORMATION
  Report Type: 
  Country: None (occurrence: None)
  Receive Date: 20120529
  Receipt Date: 20120515
  Transmission Date: 20120825
  Serious: Yes (Hospitalization)
  Sender: FDA-Public Use
  Company Number: TW-MYLANLABS-2012S1010255

PATIENT
  Age: 28 Day
  Sex: Male
  Weight: 4 kg

DRUGS (1)
  1. AMIODARONE HCL [Suspect]
     Indication: SUPRAVENTRICULAR TACHYCARDIA
     Dosage: 5 MG/KG INFUSED FOR 30 MIN
     Route: 065

REACTIONS (4)
  - HYPOTENSION [None]
  - SUPRAVENTRICULAR TACHYCARDIA [None]
  - CIRCULATORY COLLAPSE [None]
  - BRADYCARDIA [None]
